FAERS Safety Report 8806155 (Version 1)
Quarter: 2012Q4

REPORT INFORMATION
  Report Type: Spontaneous
  Country: US (occurrence: None)
  Receive Date: 20120917
  Receipt Date: 20120917
  Transmission Date: 20130627
  Serious: Yes (Hospitalization)
  Sender: FDA-Public Use
  Company Number: 2012AP002765

PATIENT
  Age: 34 Year
  Sex: Male

DRUGS (26)
  1. FLUCONAZOLE [Suspect]
     Indication: CANDIDIASIS
     Route: 048
  2. FLUCONAZOLE [Suspect]
     Indication: CANDIDIASIS
     Route: 042
  3. FLUCONAZOLE [Suspect]
     Indication: CANDIDIASIS
     Route: 048
  4. FLUCONAZOLE [Suspect]
     Indication: CANDIDIASIS
     Route: 048
  5. FLUCONAZOLE [Suspect]
     Indication: CANDIDIASIS
     Route: 048
  6. FLUCONAZOLE [Suspect]
     Indication: CANDIDIASIS
  7. FAMOTIDINE [Suspect]
     Indication: ESOPHAGITIS
     Route: 048
  8. AZITHROMYCIN [Suspect]
     Indication: PRODUCT USED FOR UNKNOWN INDICATION
     Route: 048
  9. RIFABUTIN [Suspect]
     Indication: DISSEMINATED MYCOBACTERIUM AVIUM COMPLEX INFECTION
     Route: 048
  10. RITONAVIR [Suspect]
     Indication: PRODUCT USED FOR UNKNOWN INDICATION
  11. EMTRICITABINE W/TENOFOVIR [Concomitant]
  12. ATAZANAVIR [Concomitant]
  13. ETHAMBUTOL [Concomitant]
  14. MOXIFLOXACIN [Concomitant]
  15. VALGANCICLOVIR [Concomitant]
  16. FILGRASTIM [Concomitant]
  17. COLECALCIFEROL [Concomitant]
  18. ALPRAZOLAM [Concomitant]
  19. PROCET [Concomitant]
  20. FERROUS SULFATE [Concomitant]
  21. PARACETAMOL [Concomitant]
  22. PARACETAMOL [Concomitant]
  23. MORPHINE [Concomitant]
  24. HYDROMORPHONE [Concomitant]
  25. LIDOCAINE [Concomitant]
  26. SODIUM CHLORIDE [Concomitant]

REACTIONS (5)
  - Leukopenia [None]
  - Anaemia [None]
  - Thrombocytopenia [None]
  - Hiatus hernia [None]
  - Drug interaction [None]
